FAERS Safety Report 9320800 (Version 2)
Quarter: 2013Q2

REPORT INFORMATION
  Report Type: Spontaneous
  Country: ZA (occurrence: ZA)
  Receive Date: 20130531
  Receipt Date: 20130611
  Transmission Date: 20140414
  Serious: Yes (Death, Other)
  Sender: FDA-Public Use
  Company Number: ZA-009507513-1305ZAF016068

PATIENT
  Age: 29 Year
  Sex: Female
  Weight: 111 kg

DRUGS (3)
  1. ESMERON [Suspect]
     Indication: GENERAL ANAESTHESIA
     Dosage: 60 MG, ONCE
  2. MAGNESIUM SULFATE [Concomitant]
  3. NIFEDIPINE [Concomitant]

REACTIONS (3)
  - Death [Fatal]
  - Cardiac arrest [Unknown]
  - Neuromuscular blockade [Unknown]
